FAERS Safety Report 18339639 (Version 2)
Quarter: 2021Q1

REPORT INFORMATION
  Report Type: Report from Study
  Country: None (occurrence: US)
  Receive Date: 20201002
  Receipt Date: 20210217
  Transmission Date: 20210419
  Serious: Yes (Other)
  Sender: FDA-Public Use
  Company Number: US-ABBVIE-19K-163-3216107-00

PATIENT
  Age: 51 Year
  Sex: Male
  Weight: 143.01 kg

DRUGS (3)
  1. IMURAN [Concomitant]
     Active Substance: AZATHIOPRINE
     Indication: CROHN^S DISEASE
  2. HUMIRA [Suspect]
     Active Substance: ADALIMUMAB
     Indication: CROHN^S DISEASE
     Route: 058
     Dates: start: 201207
  3. MODERNA COVID?19 VACCINE [Concomitant]
     Active Substance: CX-024414
     Indication: COVID-19 IMMUNISATION
     Dosage: MODERNA
     Route: 030
     Dates: start: 20210124, end: 20210124

REACTIONS (6)
  - Malignant neoplasm of eye [Unknown]
  - Basal cell carcinoma [Recovered/Resolved]
  - Arthralgia [Not Recovered/Not Resolved]
  - Bipolar disorder [Recovering/Resolving]
  - Insomnia [Recovering/Resolving]
  - Tooth impacted [Recovered/Resolved]

NARRATIVE: CASE EVENT DATE: 202002
